FAERS Safety Report 24537611 (Version 2)
Quarter: 2024Q4

REPORT INFORMATION
  Report Type: Spontaneous
  Country: US (occurrence: US)
  Receive Date: 20241023
  Receipt Date: 20241025
  Transmission Date: 20250115
  Serious: Yes (Hospitalization, Other)
  Sender: UCB
  Company Number: US-UCBSA-2024053803

PATIENT
  Sex: Male
  Weight: 107 kg

DRUGS (1)
  1. RYSTIGGO [Suspect]
     Active Substance: ROZANOLIXIZUMAB-NOLI
     Indication: Myasthenia gravis

REACTIONS (1)
  - Myasthenia gravis [Unknown]
